FAERS Safety Report 10019620 (Version 4)
Quarter: 2014Q2

REPORT INFORMATION
  Report Type: Spontaneous
  Country: JP (occurrence: JP)
  Receive Date: 20140318
  Receipt Date: 20140423
  Transmission Date: 20141212
  Serious: Yes (Hospitalization)
  Sender: FDA-Public Use
  Company Number: JP-PFIZER INC-2014075575

PATIENT
  Age: 60 Year
  Sex: Male

DRUGS (3)
  1. SUTENT [Suspect]
     Indication: RENAL CELL CARCINOMA
     Dosage: 25 MG, DAILY (ON A 4-WEEK-ON, A 2-WEEK-OFF SCHEDULE)
     Route: 048
     Dates: start: 20131001, end: 20140303
  2. BAYASPIRIN [Concomitant]
     Indication: STENT PLACEMENT
     Dosage: 100 MG, DAILY
     Route: 048
  3. BAYASPIRIN [Concomitant]
     Indication: ANGINA PECTORIS

REACTIONS (1)
  - Haemorrhagic erosive gastritis [Recovering/Resolving]
